FAERS Safety Report 21344176 (Version 2)
Quarter: 2024Q1

REPORT INFORMATION
  Report Type: Spontaneous
  Country: US (occurrence: US)
  Receive Date: 20220916
  Receipt Date: 20240117
  Transmission Date: 20240409
  Serious: No
  Sender: FDA-Public Use
  Company Number: US-SK LIFE SCIENCE, INC-SKPVG-2022-000561

PATIENT

DRUGS (8)
  1. XCOPRI [Suspect]
     Active Substance: CENOBAMATE
     Indication: Generalised tonic-clonic seizure
     Dosage: UNK
     Route: 048
     Dates: start: 202207
  2. XCOPRI [Suspect]
     Active Substance: CENOBAMATE
     Indication: Seizure
     Dosage: 25 MILLIGRAM, ONCE DAILY (12.5 / 25 MG TITRATION PACK)
     Route: 048
     Dates: end: 20220726
  3. XCOPRI [Suspect]
     Active Substance: CENOBAMATE
     Dosage: TWO 150MG TABLETS IN THE MORNING FOR A TOTAL OF 300MG
     Route: 048
     Dates: end: 20231031
  4. XCOPRI [Suspect]
     Active Substance: CENOBAMATE
     Dosage: 150 MILLIGRAM, BID
     Route: 048
  5. BACLOFEN [Concomitant]
     Active Substance: BACLOFEN
     Indication: Muscle spasticity
     Dosage: 30 MILLIGRAM, TID
     Route: 065
     Dates: start: 200503
  6. LAMOTRIGINE [Concomitant]
     Active Substance: LAMOTRIGINE
     Indication: Product used for unknown indication
     Dosage: 50 MILLIGRAM, TWICE DAILY (MORNING AND AFTERNOON)
     Route: 065
     Dates: start: 201607, end: 202311
  7. TIZANIDINE [Concomitant]
     Active Substance: TIZANIDINE
     Indication: Muscle spasticity
     Dosage: 2.5 MILLIGRAM ONE IN THE MORNING, ONE IN THE AFTERNOON, TWO AT BEDTIME
     Route: 065
     Dates: start: 202207
  8. DIAZEPAM [Concomitant]
     Active Substance: DIAZEPAM
     Indication: Seizure
     Dosage: 10 MILLIGRAM, PRN
     Route: 065

REACTIONS (4)
  - COVID-19 [Recovered/Resolved]
  - Product use in unapproved indication [Not Recovered/Not Resolved]
  - Therapy cessation [Recovered/Resolved]
  - Seizure [Recovered/Resolved]

NARRATIVE: CASE EVENT DATE: 20220701
